FAERS Safety Report 4653411-3 (Version None)
Quarter: 2005Q2

REPORT INFORMATION
  Report Type: 
  Country: None (occurrence: None)
  Receive Date: 20050505
  Receipt Date: 20050427
  Transmission Date: 20051028
  Serious: Yes (Other)
  Sender: FDA-Public Use
  Company Number: US-JNJFOC-20050407280

PATIENT
  Sex: Female
  Weight: 52.16 kg

DRUGS (3)
  1. REMICADE [Suspect]
     Indication: RHEUMATOID ARTHRITIS
     Dosage: HAS BEEN ON INFLIXIMAB ^FOR ABOUT TWO YEARS^
     Route: 042
  2. METHOTREXATE [Concomitant]
  3. MULTIPLE MEDICATIONS [Concomitant]

REACTIONS (2)
  - MULTIPLE ALLERGIES [None]
  - SPINAL COMPRESSION FRACTURE [None]
